FAERS Safety Report 4264073-1 (Version None)
Quarter: 2004Q1

REPORT INFORMATION
  Report Type: 
  Country: None (occurrence: None)
  Receive Date: 20040105
  Receipt Date: 20031216
  Transmission Date: 20041129
  Serious: Yes (Death, Hospitalization)
  Sender: FDA-Public Use
  Company Number: 188737

PATIENT
  Age: 53 Year
  Sex: Male
  Weight: 81.6475 kg

DRUGS (1)
  1. AVONEX [Suspect]
     Indication: MULTIPLE SCLEROSIS
     Dates: start: 19970101, end: 19990101

REACTIONS (5)
  - COMA [None]
  - CONVULSION [None]
  - HEAT EXHAUSTION [None]
  - RENAL FAILURE [None]
  - RESPIRATORY FAILURE [None]
